FAERS Safety Report 8546110-9 (Version None)
Quarter: 2012Q3

REPORT INFORMATION
  Report Type: 
  Country: None (occurrence: None)
  Receive Date: 20120727
  Receipt Date: 20111208
  Transmission Date: 20120928
  Serious: No
  Sender: FDA-Public Use
  Company Number: US-ASTRAZENECA-2011SE74640

PATIENT
  Age: 51 Year
  Sex: Female
  Weight: 72.6 kg

DRUGS (5)
  1. SEROQUEL [Suspect]
     Indication: DEPRESSION
     Route: 048
     Dates: start: 20110501
  2. ACTZ [Concomitant]
     Indication: BLOOD PRESSURE ABNORMAL
  3. ATENOLOL [Concomitant]
     Indication: BLOOD PRESSURE ABNORMAL
  4. PRISTIC [Concomitant]
  5. TRAZIDONE [Concomitant]

REACTIONS (5)
  - DRUG DOSE OMISSION [None]
  - ANXIETY [None]
  - NERVOUSNESS [None]
  - NAUSEA [None]
  - DIARRHOEA [None]
